FAERS Safety Report 17694893 (Version 1)
Quarter: 2020Q2

REPORT INFORMATION
  Report Type: Spontaneous
  Country: TW (occurrence: TW)
  Receive Date: 20200422
  Receipt Date: 20200422
  Transmission Date: 20200714
  Serious: Yes (Other)
  Sender: FDA-Public Use
  Company Number: NVSC2020TW104115

PATIENT
  Sex: Female

DRUGS (5)
  1. XELODA [Concomitant]
     Active Substance: CAPECITABINE
     Indication: RECTOSIGMOID CANCER
     Dosage: UNK
     Route: 065
     Dates: start: 20180920
  2. FLUOROURACIL. [Suspect]
     Active Substance: FLUOROURACIL
     Indication: RECTOSIGMOID CANCER
     Dosage: UNK
     Route: 065
     Dates: start: 20180816
  3. IRINOTECAN [Concomitant]
     Active Substance: IRINOTECAN
     Indication: RECTOSIGMOID CANCER
     Dosage: UNK
     Route: 065
     Dates: start: 20180816
  4. LEUCOVORIN. [Concomitant]
     Active Substance: LEUCOVORIN
     Indication: RECTOSIGMOID CANCER
     Dosage: UNK
     Route: 065
     Dates: start: 20180816
  5. OXALIPLATIN. [Suspect]
     Active Substance: OXALIPLATIN
     Indication: RECTOSIGMOID CANCER
     Dosage: UNK
     Route: 065
     Dates: start: 20180816

REACTIONS (4)
  - Metastases to lung [Unknown]
  - Rectosigmoid cancer recurrent [Unknown]
  - Metastases to adrenals [Unknown]
  - Metastases to central nervous system [Unknown]
